FAERS Safety Report 8317520-X (Version None)
Quarter: 2012Q2

REPORT INFORMATION
  Report Type: 
  Country: None (occurrence: None)
  Receive Date: 20120427
  Receipt Date: 20120418
  Transmission Date: 20120825
  Serious: Yes (Hospitalization)
  Sender: FDA-Public Use
  Company Number: US-DX529-2012DX000097

PATIENT
  Age: 54 Year
  Sex: Female
  Weight: 92.08 kg

DRUGS (3)
  1. OXANDRIN [Concomitant]
     Indication: HEREDITARY ANGIOEDEMA
  2. KALBITOR [Suspect]
     Indication: HEREDITARY ANGIOEDEMA
     Route: 058
     Dates: start: 20120415, end: 20120415
  3. KALBITOR [Suspect]
     Route: 058
     Dates: start: 20120415, end: 20120415

REACTIONS (3)
  - CORONARY ARTERY OCCLUSION [None]
  - THERAPEUTIC RESPONSE DECREASED [None]
  - ELECTROCARDIOGRAM ABNORMAL [None]
